FAERS Safety Report 21144404 (Version 1)
Quarter: 2022Q3

REPORT INFORMATION
  Report Type: Report from Study
  Country: JP (occurrence: JP)
  Receive Date: 20220728
  Receipt Date: 20220728
  Transmission Date: 20221027
  Serious: Yes (Hospitalization)
  Sender: FDA-Public Use
  Company Number: JP-DSJP-DSJ-2021-110680

PATIENT
  Age: 69 Year
  Sex: Male
  Weight: 58 kg

DRUGS (9)
  1. PRASUGREL HYDROCHLORIDE [Suspect]
     Active Substance: PRASUGREL HYDROCHLORIDE
     Indication: Acute myocardial infarction
     Dosage: 20 MG, QD
     Route: 048
     Dates: start: 20161211, end: 20161211
  2. PRASUGREL HYDROCHLORIDE [Suspect]
     Active Substance: PRASUGREL HYDROCHLORIDE
     Indication: Coronary angioplasty
     Dosage: 3.75 MG, QD
     Route: 048
     Dates: start: 20161212, end: 20161215
  3. HEPARIN [Suspect]
     Active Substance: HEPARIN SODIUM
     Dosage: 5000IU
     Route: 040
  4. HEPARIN [Suspect]
     Active Substance: HEPARIN SODIUM
     Dosage: 5000IU
     Route: 040
  5. HEPARIN [Suspect]
     Active Substance: HEPARIN SODIUM
     Dosage: 10000 IU, QD
     Route: 042
     Dates: start: 20161211, end: 20161211
  6. ASPIRIN [Suspect]
     Active Substance: ASPIRIN
     Dosage: 0.1 G, QD
     Route: 048
     Dates: start: 20161212
  7. ASPIRIN\HYDROTALCITE [Suspect]
     Active Substance: ASPIRIN\HYDROTALCITE
     Dosage: 330 MG, QD
     Route: 048
     Dates: start: 20161211, end: 20161211
  8. ASPIRIN\LANSOPRAZOLE [Suspect]
     Active Substance: ASPIRIN\LANSOPRAZOLE
     Dosage: 1 DF, QD
     Route: 048
     Dates: start: 20161212, end: 20161212
  9. ARICEPT [Concomitant]
     Active Substance: DONEPEZIL HYDROCHLORIDE
     Dosage: 1 DF, QD
     Route: 065

REACTIONS (2)
  - Ventricle rupture [Recovering/Resolving]
  - Cardiac tamponade [Unknown]

NARRATIVE: CASE EVENT DATE: 20161212
